FAERS Safety Report 25090028 (Version 1)
Quarter: 2025Q1

REPORT INFORMATION
  Report Type: Spontaneous
  Country: US (occurrence: None)
  Receive Date: 20250317
  Receipt Date: 20250317
  Transmission Date: 20250409
  Serious: Yes (Other)
  Sender: FDA-CTU
  Company Number: None

PATIENT
  Age: 60 Year
  Sex: Female
  Weight: 64 kg

DRUGS (1)
  1. SAPHNELO [Suspect]
     Active Substance: ANIFROLUMAB-FNIA
     Indication: Systemic lupus erythematosus
     Route: 040
     Dates: start: 20241212, end: 20250317

REACTIONS (6)
  - Cough [None]
  - Flushing [None]
  - Fatigue [None]
  - Apathy [None]
  - Stupor [None]
  - Sinus congestion [None]

NARRATIVE: CASE EVENT DATE: 20250314
